FAERS Safety Report 8310194-3 (Version None)
Quarter: 2012Q2

REPORT INFORMATION
  Report Type: 
  Country: None (occurrence: None)
  Receive Date: 20120425
  Receipt Date: 20120418
  Transmission Date: 20120825
  Serious: Yes (Hospitalization)
  Sender: FDA-Public Use
  Company Number: US-BAYER-2012-039263

PATIENT
  Age: 29 Year
  Sex: Female
  Weight: 81.633 kg

DRUGS (4)
  1. ALLEGRA [Concomitant]
     Indication: MULTIPLE ALLERGIES
     Dosage: Q HS
     Route: 048
  2. ALBUTEROL [Concomitant]
     Indication: ASTHMA
     Dosage: 2 PUFFS, PRN
     Route: 045
     Dates: start: 20050221
  3. YASMIN [Suspect]
  4. ZOLOFT [Concomitant]
     Indication: DEPRESSION
     Dosage: 100 MG, HS
     Route: 048
     Dates: start: 20050221

REACTIONS (1)
  - PULMONARY EMBOLISM [None]
